FAERS Safety Report 10452076 (Version 7)
Quarter: 2015Q2

REPORT INFORMATION
  Report Type: Spontaneous
  Country: BR (occurrence: BR)
  Receive Date: 20140915
  Receipt Date: 20150429
  Transmission Date: 20150821
  Serious: Yes (Disabling, Congenital Anomaly)
  Sender: FDA-Public Use
  Company Number: BR-ROCHE-1460294

PATIENT
  Age: 1 Month
  Sex: Female

DRUGS (1)
  1. XELODA [Suspect]
     Active Substance: CAPECITABINE
     Indication: PRODUCT USED FOR UNKNOWN INDICATION
     Route: 064

REACTIONS (3)
  - Ear malformation [Not Recovered/Not Resolved]
  - Foetal exposure during pregnancy [Unknown]
  - Hypoacusis [Not Recovered/Not Resolved]
